FAERS Safety Report 24325696 (Version 2)
Quarter: 2024Q4

REPORT INFORMATION
  Report Type: Spontaneous
  Country: MX (occurrence: MX)
  Receive Date: 20240917
  Receipt Date: 20241007
  Transmission Date: 20250114
  Serious: Yes (Hospitalization)
  Sender: ROCHE
  Company Number: MX-ROCHE-10000081927

PATIENT
  Age: 85 Year
  Sex: Male

DRUGS (3)
  1. GAZYVA [Suspect]
     Active Substance: OBINUTUZUMAB
     Indication: Chronic lymphocytic leukaemia
     Dosage: FREQUENCY WAS NOT REPORTED
     Route: 042
     Dates: start: 202405, end: 202405
  2. GAZYVA [Suspect]
     Active Substance: OBINUTUZUMAB
     Dosage: FREQUENCY WAS NOT REPORTED
     Route: 042
  3. VENCLEXTA [Suspect]
     Active Substance: VENETOCLAX
     Indication: Chronic lymphocytic leukaemia
     Dosage: START DATE: -AUG-2024.?50 MG / 1 EA
     Route: 065
     Dates: end: 202408

REACTIONS (1)
  - Tuberculosis [Recovering/Resolving]

NARRATIVE: CASE EVENT DATE: 20240501
